FAERS Safety Report 7392598-9 (Version None)
Quarter: 2011Q2

REPORT INFORMATION
  Report Type: 
  Country: None (occurrence: None)
  Receive Date: 20110404
  Receipt Date: 20110321
  Transmission Date: 20111010
  Serious: Yes (Hospitalization, Disabling)
  Sender: FDA-Public Use
  Company Number: B0708510A

PATIENT
  Sex: Male

DRUGS (5)
  1. OFATUMUMAB [Suspect]
     Route: 042
  2. REPAGLINIDE [Concomitant]
     Indication: DIABETES MELLITUS
     Dosage: 1MG PER DAY
     Route: 048
     Dates: start: 20030101
  3. METFORMIN HCL [Concomitant]
     Indication: DIABETES MELLITUS
     Dosage: 850MG TWICE PER DAY
     Route: 048
     Dates: start: 20030101
  4. TRIMETHOPRIM + SULFAMETHOXAZOLE [Concomitant]
     Dosage: 480MG TWO TIMES PER WEEK
     Route: 048
     Dates: start: 20080101
  5. ASPIRIN [Concomitant]
     Dosage: 100MG PER DAY
     Route: 048
     Dates: start: 20000101

REACTIONS (4)
  - CELLULITIS [None]
  - SWELLING [None]
  - GAIT DISTURBANCE [None]
  - PAIN IN EXTREMITY [None]
